FAERS Safety Report 8094642-2 (Version None)
Quarter: 2012Q1

REPORT INFORMATION
  Report Type: 
  Country: None (occurrence: None)
  Receive Date: 20120131
  Receipt Date: 20111128
  Transmission Date: 20120608
  Serious: No
  Sender: FDA-Public Use
  Company Number: US-ABBOTT-11P-163-0877690-00

PATIENT
  Sex: Female

DRUGS (2)
  1. CREON [Suspect]
     Indication: PAIN
     Dates: start: 20111104
  2. CREON [Suspect]
     Indication: INFLAMMATION

REACTIONS (12)
  - DIZZINESS [None]
  - FATIGUE [None]
  - OCULAR HYPERAEMIA [None]
  - EYE INFECTION [None]
  - EYE SWELLING [None]
  - FEELING ABNORMAL [None]
  - UPPER RESPIRATORY TRACT INFECTION [None]
  - OPHTHALMIC FLUID DRAINAGE [None]
  - OFF LABEL USE [None]
  - CONJUNCTIVITIS [None]
  - EYE IRRITATION [None]
  - EYE DISCHARGE [None]
